FAERS Safety Report 8969290 (Version 3)
Quarter: 2013Q4

REPORT INFORMATION
  Report Type: Spontaneous
  Country: US (occurrence: US)
  Receive Date: 20121218
  Receipt Date: 20131001
  Transmission Date: 20140711
  Serious: Yes (Hospitalization)
  Sender: FDA-Public Use
  Company Number: US-BAXTER-2012BAX026665

PATIENT
  Age: 37 Year
  Sex: Female

DRUGS (1)
  1. DIANEAL LOW CALCIUM [Suspect]
     Indication: PERITONEAL DIALYSIS
     Route: 033
     Dates: end: 20121221

REACTIONS (6)
  - Peritoneal cloudy effluent [Recovered/Resolved]
  - Paraesthesia [Recovered/Resolved]
  - Abdominal distension [Recovered/Resolved]
  - Abdominal pain [Recovered/Resolved]
  - Pain [Unknown]
  - Discomfort [Unknown]
